FAERS Safety Report 18531739 (Version 5)
Quarter: 2021Q3

REPORT INFORMATION
  Report Type: Spontaneous
  Country: US (occurrence: US)
  Receive Date: 20201123
  Receipt Date: 20210818
  Transmission Date: 20211014
  Serious: Yes (Other)
  Sender: FDA-Public Use
  Company Number: US-AMGEN-USASP2020188577

PATIENT
  Age: 36 Year
  Sex: Female

DRUGS (14)
  1. MULTIVITAMIN [ASCORBIC ACID;CALCIUM PANTOTHENATE;ERGOCALCIFEROL;NICOTI [Concomitant]
     Active Substance: VITAMINS
  2. VITAMIN D [ERGOCALCIFEROL] [Concomitant]
     Active Substance: ERGOCALCIFEROL
     Dosage: UNK
     Route: 065
  3. ADDERALL [Concomitant]
     Active Substance: AMPHETAMINE ASPARTATE\AMPHETAMINE SULFATE\DEXTROAMPHETAMINE SACCHARATE\DEXTROAMPHETAMINE SULFATE
     Dosage: UNK
     Route: 065
  4. PROBIOTIC [BIFIDOBACTERIUM LACTIS] [Concomitant]
     Active Substance: BIFIDOBACTERIUM ANIMALIS LACTIS
     Dosage: UNK
     Route: 065
  5. TRAMADOL HCL [Concomitant]
     Active Substance: TRAMADOL HYDROCHLORIDE
  6. VITAMIN B6 [Concomitant]
     Active Substance: PYRIDOXINE HYDROCHLORIDE
     Dosage: UNK
     Route: 065
  7. OTEZLA [Suspect]
     Active Substance: APREMILAST
     Indication: PSORIATIC ARTHROPATHY
     Dosage: 30 MILLIGRAM, BID
     Route: 048
     Dates: start: 20200924
  8. PREDNISONE. [Concomitant]
     Active Substance: PREDNISONE
  9. HYDROCHLOROTH [Concomitant]
     Active Substance: HYDROCHLOROTHIAZIDE
     Dosage: UNK
     Route: 065
  10. TESTOSTERONE. [Concomitant]
     Active Substance: TESTOSTERONE
     Dosage: UNK
     Route: 065
  11. OTEZLA [Suspect]
     Active Substance: APREMILAST
     Indication: PSORIASIS
  12. CYCLOBENZAPRIN [Concomitant]
     Active Substance: CYCLOBENZAPRINE
  13. DULOXETINE. [Concomitant]
     Active Substance: DULOXETINE
  14. MELOXICAM. [Concomitant]
     Active Substance: MELOXICAM
     Dosage: UNK

REACTIONS (8)
  - Diarrhoea [Not Recovered/Not Resolved]
  - Infection [Not Recovered/Not Resolved]
  - Vomiting [Not Recovered/Not Resolved]
  - Product dose omission issue [Unknown]
  - Psoriatic arthropathy [Not Recovered/Not Resolved]
  - Nausea [Not Recovered/Not Resolved]
  - Headache [Not Recovered/Not Resolved]
  - Psoriasis [Unknown]

NARRATIVE: CASE EVENT DATE: 202011
